FAERS Safety Report 6252064-0 (Version None)
Quarter: 2009Q2

REPORT INFORMATION
  Report Type: 
  Country: None (occurrence: None)
  Receive Date: 20090630
  Receipt Date: 20060619
  Transmission Date: 20091009
  Serious: Yes (Hospitalization)
  Sender: FDA-Public Use
  Company Number: US-ROCHE-638749

PATIENT
  Sex: Male

DRUGS (10)
  1. ENFUVIRTIDE [Suspect]
     Route: 065
     Dates: start: 20031126, end: 20060401
  2. ENFUVIRTIDE [Suspect]
     Route: 065
     Dates: start: 20060913, end: 20061022
  3. EPIVIR [Concomitant]
     Indication: ANTIRETROVIRAL THERAPY
     Dates: start: 20031126, end: 20060401
  4. INVIRASE [Concomitant]
     Indication: ANTIRETROVIRAL THERAPY
     Dates: start: 20031126, end: 20060401
  5. NORVIR [Concomitant]
     Indication: ANTIRETROVIRAL THERAPY
     Dates: start: 20031126, end: 20060401
  6. VIREAD [Concomitant]
     Indication: ANTIRETROVIRAL THERAPY
     Dates: start: 20031126, end: 20060401
  7. ZERIT [Concomitant]
     Indication: ANTIRETROVIRAL THERAPY
     Dates: start: 20031126, end: 20060401
  8. TRUVADA [Concomitant]
     Indication: ANTIRETROVIRAL THERAPY
     Dates: start: 20060109, end: 20061022
  9. BACTRIM [Concomitant]
     Indication: ANTIBIOTIC THERAPY
     Dates: start: 20031013, end: 20061022
  10. ZITHROMAX [Concomitant]
     Indication: ANTIBIOTIC THERAPY
     Dates: start: 20031013, end: 20060109

REACTIONS (1)
  - ALCOHOL ABUSE [None]
